FAERS Safety Report 23400374 (Version 1)
Quarter: 2024Q1

REPORT INFORMATION
  Report Type: Spontaneous
  Country: US (occurrence: US)
  Receive Date: 20240115
  Receipt Date: 20240115
  Transmission Date: 20240409
  Serious: Yes (Hospitalization, Other)
  Sender: FDA-Public Use
  Company Number: US-LUPIN PHARMACEUTICALS INC.-2024-00116

PATIENT
  Age: 8 Decade
  Sex: Male

DRUGS (3)
  1. CALCIUM [Suspect]
     Active Substance: CALCIUM
     Indication: Hungry bone syndrome
     Dosage: 1000 MG
     Route: 048
  2. CALCITRIOL [Suspect]
     Active Substance: CALCITRIOL
     Indication: Hungry bone syndrome
     Dosage: 0.5 MICROGRAM
     Route: 065
  3. VITAMIN D [Concomitant]
     Active Substance: VITAMIN D NOS
     Indication: Prophylaxis
     Dosage: 50000 INTERNATIONAL UNIT
     Route: 048

REACTIONS (3)
  - Acute kidney injury [Recovering/Resolving]
  - Hypercalcaemia [Recovered/Resolved]
  - Off label use [Unknown]
